FAERS Safety Report 26084581 (Version 2)
Quarter: 2025Q4

REPORT INFORMATION
  Report Type: Spontaneous
  Country: US (occurrence: US)
  Receive Date: 20251124
  Receipt Date: 20251224
  Transmission Date: 20260118
  Serious: Yes (Other)
  Sender: PRINSTON PHARMACEUTICAL
  Company Number: US-PRINSTON PHARMACEUTICAL INC.-2025PRN00383

PATIENT
  Sex: Female
  Weight: 90.703 kg

DRUGS (2)
  1. LOSARTAN POTASSIUM AND HYDROCHLOROTHIAZIDE [Suspect]
     Active Substance: HYDROCHLOROTHIAZIDE\LOSARTAN POTASSIUM
     Indication: Hypertension
     Dosage: 1 DOSAGE FORM, 1X/DAY (100/25 EACH MORNING)
     Route: 048
     Dates: start: 20251005
  2. Unspecified OTC allergy medication [Concomitant]
     Dosage: UNK, 1X/DAY

REACTIONS (5)
  - Lip blister [Recovered/Resolved]
  - Hypersensitivity [Unknown]
  - Lip swelling [Recovered/Resolved]
  - Product substitution issue [Unknown]
  - Suspected product quality issue [Unknown]

NARRATIVE: CASE EVENT DATE: 20250101
